FAERS Safety Report 4433137-1 (Version None)
Quarter: 2004Q3

REPORT INFORMATION
  Report Type: 
  Country: None (occurrence: None)
  Receive Date: 20040823
  Receipt Date: 20040816
  Transmission Date: 20050211
  Serious: Yes (Hospitalization, Other)
  Sender: FDA-Public Use
  Company Number: KII-2004-0013035

PATIENT
  Sex: Female

DRUGS (1)
  1. OXYCONTIN [Suspect]
     Dosage: NASAL
     Route: 045

REACTIONS (5)
  - BRONCHOSPASM [None]
  - DRUG ABUSER [None]
  - DRUG EFFECT DECREASED [None]
  - STATUS ASTHMATICUS [None]
  - TACHYPNOEA [None]
